FAERS Safety Report 6749918-5 (Version None)
Quarter: 2010Q2

REPORT INFORMATION
  Report Type: 
  Country: None (occurrence: None)
  Receive Date: 20100527
  Receipt Date: 20100527
  Transmission Date: 20101027
  Serious: Yes (Life-Threatening)
  Sender: FDA-Public Use
  Company Number: None

PATIENT
  Age: 77 Year
  Sex: Female
  Weight: 56.6996 kg

DRUGS (1)
  1. PEMETREXED [Suspect]
     Indication: NON-SMALL CELL LUNG CANCER
     Dosage: 500 MG PER M2 EVERY 3 WEEKS NASAL
     Route: 045
     Dates: start: 20071117, end: 20100120

REACTIONS (4)
  - COUGH [None]
  - HYPERHIDROSIS [None]
  - LUNG INFILTRATION [None]
  - PYREXIA [None]
